FAERS Safety Report 8020343-2 (Version None)
Quarter: 2012Q1

REPORT INFORMATION
  Report Type: 
  Country: None (occurrence: None)
  Receive Date: 20120103
  Receipt Date: 20111229
  Transmission Date: 20120608
  Serious: Yes (Other)
  Sender: FDA-Public Use
  Company Number: US-CEPHALON-2011006402

PATIENT
  Sex: Male
  Weight: 85 kg

DRUGS (3)
  1. TREANDA [Suspect]
     Route: 042
     Dates: start: 20111219, end: 20111220
  2. ALLOPURINOL [Suspect]
     Dates: end: 20111220
  3. TREANDA [Suspect]
     Indication: CHRONIC LYMPHOCYTIC LEUKAEMIA
     Route: 042

REACTIONS (4)
  - SWELLING [None]
  - BLISTER [None]
  - RASH ERYTHEMATOUS [None]
  - PRURITUS [None]
